FAERS Safety Report 11327237 (Version 1)
Quarter: 2015Q3

REPORT INFORMATION
  Report Type: Spontaneous
  Country: DE (occurrence: DE)
  Receive Date: 20150731
  Receipt Date: 20150731
  Transmission Date: 20151125
  Serious: Yes (Other)
  Sender: FDA-Public Use
  Company Number: DE-PFIZER INC-2014188351

PATIENT
  Age: 75 Year
  Sex: Female

DRUGS (1)
  1. TREVILOR RETARD [Suspect]
     Active Substance: VENLAFAXINE HYDROCHLORIDE
     Indication: DEPRESSION
     Dosage: UNK

REACTIONS (6)
  - Angina pectoris [Unknown]
  - Glaucoma [Unknown]
  - Malaise [Unknown]
  - Headache [Unknown]
  - Visual impairment [Unknown]
  - Blood pressure increased [Unknown]
